FAERS Safety Report 14715356 (Version 2)
Quarter: 2018Q2

REPORT INFORMATION
  Report Type: Spontaneous
  Country: CN (occurrence: CN)
  Receive Date: 20180404
  Receipt Date: 20180412
  Transmission Date: 20180711
  Serious: Yes (Hospitalization)
  Sender: FDA-Public Use
  Company Number: CN-ALLERGAN-1816887US

PATIENT
  Age: 46 Year
  Sex: Female

DRUGS (3)
  1. BOTOX [Suspect]
     Active Substance: ONABOTULINUMTOXINA
     Indication: SKIN WRINKLING
     Dosage: 32 UNITS, SINGLE
     Route: 030
     Dates: start: 20180317, end: 20180317
  2. BOTOX [Suspect]
     Active Substance: ONABOTULINUMTOXINA
     Indication: SKIN WRINKLING
  3. BOTOX [Suspect]
     Active Substance: ONABOTULINUMTOXINA
     Indication: SKIN WRINKLING

REACTIONS (11)
  - Panic reaction [Unknown]
  - Anaphylactic shock [Recovering/Resolving]
  - Cyanosis [Recovering/Resolving]
  - Facial pain [Unknown]
  - Fear [Recovering/Resolving]
  - Vomiting [Unknown]
  - Injection site pain [Unknown]
  - Agitation [Recovering/Resolving]
  - Muscle spasms [Unknown]
  - Heart rate increased [Unknown]
  - Blood pressure decreased [Unknown]

NARRATIVE: CASE EVENT DATE: 20180317
